FAERS Safety Report 19499534 (Version 1)
Quarter: 2021Q3

REPORT INFORMATION
  Report Type: Report from Study
  Country: AR (occurrence: AR)
  Receive Date: 20210707
  Receipt Date: 20210707
  Transmission Date: 20211014
  Serious: Yes (Death)
  Sender: FDA-Public Use
  Company Number: AR-JNJFOC-20210702154

PATIENT
  Age: 90 Year
  Sex: Male
  Weight: 69 kg

DRUGS (1)
  1. APALUTAMIDE [Suspect]
     Active Substance: APALUTAMIDE
     Indication: HORMONE-DEPENDENT PROSTATE CANCER
     Route: 048

REACTIONS (1)
  - General physical health deterioration [Fatal]
